FAERS Safety Report 14965075 (Version 3)
Quarter: 2018Q2

REPORT INFORMATION
  Report Type: Spontaneous
  Country: US (occurrence: US)
  Receive Date: 20180601
  Receipt Date: 20180615
  Transmission Date: 20180711
  Serious: No
  Sender: FDA-Public Use
  Company Number: US-BRISTOL-MYERS SQUIBB COMPANY-BMS-2018-050098

PATIENT
  Sex: Female

DRUGS (1)
  1. SPRYCEL [Suspect]
     Active Substance: DASATINIB
     Indication: BONE MARROW INFILTRATION
     Dosage: 70 MG, QD
     Route: 048
     Dates: start: 201801

REACTIONS (2)
  - Product use in unapproved indication [Unknown]
  - Alopecia [Unknown]
